FAERS Safety Report 9303205 (Version 1)
Quarter: 2013Q2

REPORT INFORMATION
  Report Type: Spontaneous
  Country: CA (occurrence: None)
  Receive Date: 20130521
  Receipt Date: 20130521
  Transmission Date: 20140414
  Serious: No
  Sender: FDA-Public Use
  Company Number: None

PATIENT
  Age: 65 Year
  Sex: Male
  Weight: 100 kg

DRUGS (1)
  1. AVODART [Suspect]
     Indication: PROSTATOMEGALY
     Dosage: 0.5 MG 1 - PER DAY 047
     Dates: start: 20110323

REACTIONS (4)
  - Confusional state [None]
  - Parkinsonism [None]
  - Dementia Alzheimer^s type [None]
  - Cerebral atrophy [None]
